FAERS Safety Report 20753576 (Version 1)
Quarter: 2022Q2

REPORT INFORMATION
  Report Type: Spontaneous
  Country: US (occurrence: None)
  Receive Date: 20220426
  Receipt Date: 20220426
  Transmission Date: 20220720
  Serious: No
  Sender: FDA-Public Use
  Company Number: US-ROCHE-3019895

PATIENT
  Age: 80 Year
  Sex: Male
  Weight: 93.070 kg

DRUGS (13)
  1. ESBRIET [Suspect]
     Active Substance: PIRFENIDONE
     Indication: Idiopathic pulmonary fibrosis
     Dosage: 267 MG EACH PER PILL, 3 PILLS PER MEAL FOR A TOTAL OF 9 PILLS PER DAY ;ONGOING: YES
     Route: 048
     Dates: start: 20220101
  2. ESBRIET [Suspect]
     Active Substance: PIRFENIDONE
     Dosage: 267 MG EACH PER PILL, 2 PILLS PER MEAL FOR A TOTAL OF 6 PILLS PER DAY ;ONGOING: NO
     Route: 048
     Dates: start: 20211225, end: 20211231
  3. ESBRIET [Suspect]
     Active Substance: PIRFENIDONE
     Dosage: 267 MG PILL PER MEAL ;ONGOING: NO
     Route: 048
     Dates: start: 20211218, end: 20211224
  4. ICY HOT WITH LIDOCAINE [Suspect]
     Active Substance: LIDOCAINE\MENTHOL
     Indication: Pain
     Dosage: 4% LIDOCAINE, 1% METHANOL ;ONGOING: NO
     Route: 061
     Dates: start: 202112
  5. UNSPECIFIED INGREDIENT [Concomitant]
     Active Substance: UNSPECIFIED INGREDIENT
     Indication: Tinnitus
     Dosage: ONE PILL AFTER EACH MEAL AND AT BEDTIME ;ONGOING: YES
     Route: 048
  6. DOFETILIDE [Concomitant]
     Active Substance: DOFETILIDE
     Indication: Atrial fibrillation
     Dosage: 3 PILLS 12 HOURS APART, 6 PILLS TOTAL DAILY ;ONGOING: YES
     Route: 048
  7. VITAMIN D3 [Concomitant]
     Active Substance: CHOLECALCIFEROL
     Dosage: 1000 UNITS ;ONGOING: YES
     Route: 048
  8. XARELTO [Concomitant]
     Active Substance: RIVAROXABAN
     Indication: Anticoagulant therapy
     Dosage: IN THE MORNING ;ONGOING: YES
     Route: 048
  9. XARELTO [Concomitant]
     Active Substance: RIVAROXABAN
     Indication: Atrial fibrillation
  10. FENOFIBRATE [Concomitant]
     Active Substance: FENOFIBRATE
     Dosage: YES
     Route: 048
  11. LEVOTHYROXINE [Concomitant]
     Active Substance: LEVOTHYROXINE
     Indication: Thyroid disorder
     Dosage: YES
     Route: 048
  12. TYLENOL PM [Concomitant]
     Active Substance: ACETAMINOPHEN\DIPHENHYDRAMINE
     Indication: Pain
     Dosage: AS NEEDED ;ONGOING: YES
     Route: 048
  13. TYLENOL PM [Concomitant]
     Active Substance: ACETAMINOPHEN\DIPHENHYDRAMINE
     Indication: Sleep disorder

REACTIONS (11)
  - Headache [Recovering/Resolving]
  - Fall [Unknown]
  - Ligament sprain [Unknown]
  - Pain [Not Recovered/Not Resolved]
  - Rash [Unknown]
  - Nausea [Not Recovered/Not Resolved]
  - Fatigue [Not Recovered/Not Resolved]
  - Decreased appetite [Not Recovered/Not Resolved]
  - Weight decreased [Not Recovered/Not Resolved]
  - Dizziness [Recovered/Resolved]
  - Diarrhoea [Unknown]

NARRATIVE: CASE EVENT DATE: 20211201
